FAERS Safety Report 10334269 (Version 2)
Quarter: 2014Q3

REPORT INFORMATION
  Report Type: Spontaneous
  Country: US (occurrence: US)
  Receive Date: 20140723
  Receipt Date: 20140808
  Transmission Date: 20150326
  Serious: Yes (Other)
  Sender: FDA-Public Use
  Company Number: US-SA-2014SA096034

PATIENT
  Age: 55 Year
  Sex: Male
  Weight: 88.45 kg

DRUGS (5)
  1. NOVOLOG [Concomitant]
     Active Substance: INSULIN ASPART
     Indication: DIABETES MELLITUS
     Dosage: 8 TO 10 UNITS AFTER EACH MEAL
     Route: 065
     Dates: start: 2008
  2. ZOLOFT [Concomitant]
     Active Substance: SERTRALINE HYDROCHLORIDE
     Indication: DEPRESSION
     Dosage: THERAPY START DATE 23 YEARS AGO
  3. QUINAPRIL [Concomitant]
     Active Substance: QUINAPRIL\QUINAPRIL HYDROCHLORIDE
  4. LANTUS [Suspect]
     Active Substance: INSULIN GLARGINE
     Indication: DIABETES MELLITUS
     Dosage: 40-45 UNITS AT NIGHT
     Route: 065
     Dates: start: 2008
  5. ZOLOFT [Concomitant]
     Active Substance: SERTRALINE HYDROCHLORIDE
     Indication: DIABETES MELLITUS
     Dosage: THERAPY START DATE 23 YEARS AGO

REACTIONS (2)
  - Disability [Unknown]
  - Blood glucose increased [Unknown]
